FAERS Safety Report 5146776-X (Version None)
Quarter: 2006Q4

REPORT INFORMATION
  Report Type: 
  Country: None (occurrence: None)
  Receive Date: 20061107
  Receipt Date: 20061107
  Transmission Date: 20070319
  Serious: No
  Sender: FDA-Public Use
  Company Number: None

PATIENT
  Age: 11 Year
  Sex: Female
  Weight: 36.2878 kg

DRUGS (2)
  1. VENLAFAXINE HCI 37.5 MG WYETH [Suspect]
     Indication: ANXIETY
     Dosage: 37 MG ONCE DAILY PO
     Route: 048
     Dates: start: 20060327, end: 20060415
  2. EFFEXOR XR [Concomitant]

REACTIONS (7)
  - ABNORMAL BEHAVIOUR [None]
  - AGGRESSION [None]
  - FATIGUE [None]
  - PYREXIA [None]
  - SCREAMING [None]
  - SOCIAL AVOIDANT BEHAVIOUR [None]
  - SUICIDAL IDEATION [None]
